FAERS Safety Report 8907071 (Version 6)
Quarter: 2014Q1

REPORT INFORMATION
  Report Type: Report from Study
  Country: JP (occurrence: JP)
  Receive Date: 20121114
  Receipt Date: 20140305
  Transmission Date: 20141002
  Serious: Yes (Other)
  Sender: FDA-Public Use
  Company Number: JP-VERTEX PHARMACEUTICAL INC.-AE-2012-009772

PATIENT
  Age: 63 Year
  Sex: Female

DRUGS (7)
  1. VX-950 (TELAPREVIR) [Suspect]
     Indication: CHRONIC HEPATITIS C
     Dosage: 1500 MG, QD
     Route: 048
     Dates: start: 20120510, end: 20120801
  2. RIBAVIRIN [Suspect]
     Indication: CHRONIC HEPATITIS C
     Dosage: 400 MG, QD
     Route: 048
     Dates: start: 20120510
  3. PEGINTRON [Suspect]
     Indication: CHRONIC HEPATITIS C
     Dosage: 1.5 ?G/KG, QW
     Route: 058
     Dates: start: 20120510, end: 20120516
  4. PEGINTRON [Suspect]
     Dosage: 0.75 ?G/KG, QW
     Route: 058
     Dates: start: 20120517
  5. LOXOPROFEN SODIUM [Concomitant]
     Dosage: 180 MG, QD
     Route: 048
     Dates: start: 20120510, end: 20120512
  6. MUCOSTA [Concomitant]
     Dosage: 300 MG, QD
     Route: 048
     Dates: start: 20120510, end: 20120512
  7. MAGNESIUM OXIDE [Concomitant]
     Dosage: 1 G, QD
     Route: 048
     Dates: start: 20120511, end: 20120523

REACTIONS (1)
  - Neutrophil count decreased [Recovered/Resolved]
